FAERS Safety Report 24549350 (Version 1)
Quarter: 2024Q4

REPORT INFORMATION
  Report Type: Spontaneous
  Country: US (occurrence: None)
  Receive Date: 20241025
  Receipt Date: 20241025
  Transmission Date: 20250115
  Serious: Yes (Life-Threatening)
  Sender: Public
  Company Number: None

PATIENT
  Age: 80 Year
  Sex: Female
  Weight: 96 kg

DRUGS (19)
  1. BUPIVACAINE [Suspect]
     Active Substance: BUPIVACAINE
     Indication: Nerve block
     Dosage: OTHER FREQUENCY : ONCE;?OTHER ROUTE : INTRASCALENE NREVE BLOCK;?
     Route: 050
     Dates: start: 20240910, end: 20240910
  2. Acetaminophen 975mg once [Concomitant]
     Dates: start: 20240910, end: 20240910
  3. CEFAZOLIN [Concomitant]
     Active Substance: CEFAZOLIN
     Dates: start: 20240910, end: 20240911
  4. Bupivicaine epinephrine 1:200 10ml [Concomitant]
     Dates: start: 20240910, end: 20240910
  5. fentanyl Iv 100mcg [Concomitant]
     Dates: start: 20240910, end: 20240910
  6. dexemedtomidine [Concomitant]
     Dates: start: 20240910, end: 20240910
  7. phenylephrine 20mcg/min [Concomitant]
     Dates: start: 20240910, end: 20240910
  8. propofo50mg+ 75mcg/kg/min [Concomitant]
     Dates: start: 20240910
  9. VANCOMYCIN HYDROCHLORIDE [Concomitant]
     Active Substance: VANCOMYCIN HYDROCHLORIDE
     Dates: end: 20240910
  10. Promethazine 6.25mg IV [Concomitant]
  11. TRAZODONE [Concomitant]
     Active Substance: TRAZODONE HYDROCHLORIDE
     Dates: start: 20240910, end: 20240910
  12. mometasone 1 puff q12h [Concomitant]
  13. gabapentin 400mg TID [Concomitant]
     Dates: start: 20240910, end: 20240911
  14. albuterol 2 puff q6h [Concomitant]
     Dates: start: 20240911
  15. FERROUS SULFATE [Concomitant]
     Active Substance: FERROUS SULFATE
     Dates: start: 20240911
  16. fluticasone 2 sprays both nareas daily [Concomitant]
     Dates: start: 20240911
  17. loratadine 10mg daily [Concomitant]
  18. omega 3 1g daily [Concomitant]
     Dates: start: 20240911
  19. paroxetine 4mg daily [Concomitant]
     Dates: start: 20240911

REACTIONS (5)
  - Acquired diaphragmatic eventration [None]
  - Dizziness [None]
  - Hypoxia [None]
  - Nerve injury [None]
  - Bronchial disorder [None]

NARRATIVE: CASE EVENT DATE: 20240911
